FAERS Safety Report 10473818 (Version 5)
Quarter: 2015Q3

REPORT INFORMATION
  Report Type: Spontaneous
  Country: US (occurrence: US)
  Receive Date: 20140924
  Receipt Date: 20150731
  Transmission Date: 20151125
  Serious: Yes (Death, Life-Threatening, Hospitalization, Other)
  Sender: FDA-Public Use
  Company Number: US-MERCK-1409USA011198

PATIENT
  Sex: Male
  Weight: 93.42 kg

DRUGS (4)
  1. BYETTA [Suspect]
     Active Substance: EXENATIDE
     Indication: TYPE 2 DIABETES MELLITUS
     Dosage: 10 MCG, BID
     Route: 048
     Dates: start: 20110302, end: 20110803
  2. VICTOZA [Suspect]
     Active Substance: LIRAGLUTIDE
     Indication: TYPE 2 DIABETES MELLITUS
     Dosage: 18MG/3ML
     Route: 065
     Dates: start: 20120103, end: 20120215
  3. JANUVIA [Suspect]
     Active Substance: SITAGLIPTIN PHOSPHATE
     Indication: TYPE 2 DIABETES MELLITUS
     Dosage: 100 MG, QD
     Route: 048
     Dates: start: 20101210, end: 20110302
  4. BYETTA [Suspect]
     Active Substance: EXENATIDE
     Dosage: 5 MCG BID
     Route: 048
     Dates: start: 20110302, end: 20110401

REACTIONS (33)
  - Death [Fatal]
  - Anaemia [Unknown]
  - Bundle branch block right [Unknown]
  - Cough [Unknown]
  - Hypotension [Unknown]
  - Abdominal pain [Unknown]
  - Pancreatic carcinoma metastatic [Unknown]
  - Metastases to liver [Unknown]
  - Rotator cuff repair [Unknown]
  - Coronary artery bypass [Unknown]
  - Renal failure [Unknown]
  - Neck surgery [Unknown]
  - Renal stone removal [Unknown]
  - Hyperlipidaemia [Unknown]
  - Hypertension [Unknown]
  - Neutropenia [Unknown]
  - Coronary artery disease [Unknown]
  - Hypokalaemia [Unknown]
  - Large intestine polyp [Unknown]
  - Foot operation [Unknown]
  - Breath sounds abnormal [Unknown]
  - Constipation [Unknown]
  - Metastases to spleen [Unknown]
  - Metastases to abdominal wall [Unknown]
  - Laparoscopy [Unknown]
  - Biopsy liver [Unknown]
  - Lymphadenopathy [Unknown]
  - Pyrexia [Unknown]
  - Anaemia [Unknown]
  - Umbilical hernia [Unknown]
  - Anuria [Unknown]
  - Nephrolithiasis [Unknown]
  - Urinary retention [Unknown]

NARRATIVE: CASE EVENT DATE: 201205
